FAERS Safety Report 9114522 (Version 1)
Quarter: 2013Q1

REPORT INFORMATION
  Report Type: Spontaneous
  Country: US (occurrence: US)
  Receive Date: 20130128
  Receipt Date: 20130128
  Transmission Date: 20140127
  Serious: Yes (Other)
  Sender: FDA-Public Use
  Company Number: US-PFIZER INC-2013032115

PATIENT
  Sex: Female

DRUGS (2)
  1. LYRICA [Suspect]
     Indication: FIBROMYALGIA
     Dosage: UNK
  2. SSRI [Concomitant]

REACTIONS (4)
  - Activities of daily living impaired [Unknown]
  - Feeling abnormal [Unknown]
  - Sedation [Unknown]
  - Drug intolerance [Unknown]
